FAERS Safety Report 24544816 (Version 1)
Quarter: 2024Q4

REPORT INFORMATION
  Report Type: Report from Study
  Country: US (occurrence: US)
  Receive Date: 20241024
  Receipt Date: 20241024
  Transmission Date: 20250115
  Serious: Yes (Other)
  Sender: ALNYLAM PHARMACEUTICALS
  Company Number: US-ALNYLAM PHARMACEUTICALS, INC.-ALN-2024-005397

PATIENT

DRUGS (1)
  1. GIVLAARI [Suspect]
     Active Substance: GIVOSIRAN SODIUM
     Indication: Product used for unknown indication
     Dosage: 181.83 MILLIGRAM, MONTHLY
     Route: 058
     Dates: start: 20240930, end: 20240930

REACTIONS (3)
  - Nausea [Unknown]
  - Abdominal pain [Unknown]
  - Sunburn [Unknown]

NARRATIVE: CASE EVENT DATE: 20240930
